FAERS Safety Report 5752087-1 (Version None)
Quarter: 2008Q2

REPORT INFORMATION
  Report Type: 
  Country: None (occurrence: None)
  Receive Date: 20080529
  Receipt Date: 20080523
  Transmission Date: 20081010
  Serious: Yes (Death)
  Sender: FDA-Public Use
  Company Number: US-TEVA-167839USA

PATIENT
  Sex: Female

DRUGS (7)
  1. CLOZAPINE [Suspect]
     Indication: SCHIZOPHRENIA
     Route: 048
     Dates: start: 20000501
  2. VITAMINS [Concomitant]
  3. CALCIUM [Concomitant]
  4. MAGNESIUM HYDROXIDE TAB [Concomitant]
  5. MACROGOL [Concomitant]
  6. TOLTERODINE TARTRATE [Concomitant]
  7. MEDROXYPROGESTERONE ACETATE [Concomitant]

REACTIONS (1)
  - DIAPHRAGMATIC RUPTURE [None]
